FAERS Safety Report 20758667 (Version 1)
Quarter: 2022Q2

REPORT INFORMATION
  Report Type: Spontaneous
  Country: US (occurrence: US)
  Receive Date: 20220427
  Receipt Date: 20220427
  Transmission Date: 20220721
  Serious: No
  Sender: FDA-Public Use
  Company Number: US-PFIZER INC-202101449132

PATIENT
  Age: 79 Year
  Sex: Female
  Weight: 95.71 kg

DRUGS (1)
  1. CHANTIX [Suspect]
     Active Substance: VARENICLINE TARTRATE
     Indication: Smoking cessation therapy
     Dosage: 1 MG, 2X/DAY (1 MG TABLET BY MOUTH TWICE A DAY)
     Route: 048
     Dates: start: 20210715

REACTIONS (2)
  - Feeling abnormal [Recovered/Resolved]
  - Recalled product administered [Unknown]

NARRATIVE: CASE EVENT DATE: 20210715
